FAERS Safety Report 6884718-7 (Version None)
Quarter: 2010Q3

REPORT INFORMATION
  Report Type: 
  Country: None (occurrence: None)
  Receive Date: 20100729
  Receipt Date: 20071229
  Transmission Date: 20110219
  Serious: No
  Sender: FDA-Public Use
  Company Number: US-PFIZER INC-2007066522

PATIENT
  Sex: Male
  Weight: 90.9 kg

DRUGS (2)
  1. CELEBREX [Suspect]
     Indication: POSTOPERATIVE ANALGESIA
     Route: 048
     Dates: start: 20070808, end: 20070809
  2. HYDROCODONE BITARTRATE [Concomitant]
     Dates: start: 20070808

REACTIONS (1)
  - RESTLESSNESS [None]
